FAERS Safety Report 9455698 (Version 4)
Quarter: 2013Q4

REPORT INFORMATION
  Report Type: Spontaneous
  Country: AR (occurrence: AR)
  Receive Date: 20130813
  Receipt Date: 20131125
  Transmission Date: 20140711
  Serious: Yes (Other)
  Sender: FDA-Public Use
  Company Number: AR-PFIZER INC-2013230378

PATIENT
  Age: 7 Year
  Sex: Female

DRUGS (1)
  1. GENOTROPIN [Suspect]
     Indication: TURNER^S SYNDROME
     Dosage: 1-1.4MG DAILY
     Dates: start: 20130726, end: 201309

REACTIONS (2)
  - Papilloedema [Not Recovered/Not Resolved]
  - Benign neoplasm of eye [Not Recovered/Not Resolved]
